FAERS Safety Report 16469161 (Version 1)
Quarter: 2019Q3

REPORT INFORMATION
  Report Type: Spontaneous
  Country: US (occurrence: US)
  Receive Date: 20190621
  Receipt Date: 20190621
  Transmission Date: 20191004
  Serious: Yes (Life-Threatening, Hospitalization)
  Sender: FDA-Public Use
  Company Number: None

PATIENT
  Age: 55 Year
  Sex: Male
  Weight: 98 kg

DRUGS (13)
  1. SITAGLIPTIN [Suspect]
     Active Substance: SITAGLIPTIN
     Indication: TYPE 2 DIABETES MELLITUS
     Route: 048
     Dates: start: 20190521
  2. SITAGLIPTIN 100 MG TABET [Concomitant]
  3. CALCIUM POLYCARBOPHIL 625MG TABLET [Concomitant]
  4. HYDROXYZINE HCL 25 MG TABLET [Concomitant]
  5. METFORMIN 1000MG TABLET [Concomitant]
  6. RANITIDINE 150 MG TABLET [Concomitant]
  7. SILDENAFIL 20 MG TABLET [Concomitant]
     Active Substance: SILDENAFIL
  8. ASPIRIN EC 81MG ENTERIC COATED TABLET [Concomitant]
  9. ATORVASTATIN 80 MG TABLET [Concomitant]
  10. GABAPENTIN 600 MG TABLET [Concomitant]
  11. IBUPROFEN 600 MG TABLET [Concomitant]
  12. INSULIN GLARGINE 100 U/ML [Concomitant]
  13. LISINOPRIL-HYDROCHLOROTHIAZIDE 20-25 MG TABLET [Concomitant]

REACTIONS (4)
  - Rhabdomyolysis [None]
  - Compartment syndrome [None]
  - Pancreatitis necrotising [None]
  - Renal failure [None]

NARRATIVE: CASE EVENT DATE: 20190620
